FAERS Safety Report 5423774-X (Version None)
Quarter: 2007Q3

REPORT INFORMATION
  Report Type: 
  Country: None (occurrence: None)
  Receive Date: 20070823
  Receipt Date: 20070815
  Transmission Date: 20080115
  Serious: Yes (Hospitalization)
  Sender: FDA-Public Use
  Company Number: JP-MERCK-0708USA02875

PATIENT
  Sex: Male

DRUGS (1)
  1. PEPCID [Suspect]
     Indication: REFLUX OESOPHAGITIS
     Route: 048

REACTIONS (3)
  - DRUG INEFFECTIVE [None]
  - GASTRIC ULCER [None]
  - OESOPHAGITIS [None]
